FAERS Safety Report 11152068 (Version 2)
Quarter: 2015Q3

REPORT INFORMATION
  Report Type: Report from Study
  Country: JP (occurrence: JP)
  Receive Date: 20150601
  Receipt Date: 20150701
  Transmission Date: 20151125
  Serious: Yes (Hospitalization)
  Sender: FDA-Public Use
  Company Number: JP-ACTELION-A-CH2015-118429

PATIENT
  Age: 10 Year
  Sex: Male

DRUGS (8)
  1. VELETRI [Suspect]
     Active Substance: EPOPROSTENOL
     Indication: PORTOPULMONARY HYPERTENSION
     Dosage: 18 NG/KG, PER MIN
     Route: 042
     Dates: start: 20131027, end: 20140626
  2. VELETRI [Suspect]
     Active Substance: EPOPROSTENOL
     Dosage: 15 NG/KG, PER MIN
     Route: 042
     Dates: start: 20130927, end: 20131026
  3. TADALAFIL [Concomitant]
     Active Substance: TADALAFIL
  4. TRACLEER [Concomitant]
     Active Substance: BOSENTAN
     Indication: PORTOPULMONARY HYPERTENSION
  5. VELETRI [Suspect]
     Active Substance: EPOPROSTENOL
     Dosage: 5 NG/KG, PER MIN
     Route: 042
     Dates: start: 20130827, end: 20130926
  6. VELETRI [Suspect]
     Active Substance: EPOPROSTENOL
     Dosage: 26 NG/KG, PER MIN
     Route: 042
     Dates: start: 20140627
  7. WARFARIN POTASSIUM [Concomitant]
     Active Substance: WARFARIN POTASSIUM
  8. SILDENAFIL CITRATE. [Concomitant]
     Active Substance: SILDENAFIL CITRATE

REACTIONS (4)
  - Condition aggravated [Recovering/Resolving]
  - Dermatitis atopic [Recovering/Resolving]
  - Device related infection [Recovered/Resolved]
  - Catheter removal [Recovered/Resolved]

NARRATIVE: CASE EVENT DATE: 20140527
